FAERS Safety Report 10239323 (Version 2)
Quarter: 2014Q3

REPORT INFORMATION
  Report Type: Spontaneous
  Country: FR (occurrence: FR)
  Receive Date: 20140616
  Receipt Date: 20140922
  Transmission Date: 20150326
  Serious: Yes (Hospitalization)
  Sender: FDA-Public Use
  Company Number: FR-BRISTOL-MYERS SQUIBB COMPANY-20972279

PATIENT
  Age: 48 Year
  Sex: Female

DRUGS (7)
  1. TRIATEC [Suspect]
     Active Substance: RAMIPRIL
     Route: 048
  2. CRESTOR [Concomitant]
     Active Substance: ROSUVASTATIN CALCIUM
     Dosage: FLIM COATED TABLET
     Route: 048
  3. LEVOTHYROX [Concomitant]
     Active Substance: LEVOTHYROXINE
     Dosage: SCORED TABLET
  4. AERIUS [Concomitant]
     Active Substance: DESLORATADINE
  5. TIORFAN [Concomitant]
     Active Substance: RACECADOTRIL
     Route: 048
  6. SPRYCEL [Suspect]
     Active Substance: DASATINIB
     Indication: CHRONIC MYELOID LEUKAEMIA
     Route: 048
     Dates: start: 201110, end: 201404
  7. SOLUPRED [Concomitant]
     Active Substance: PREDNISOLONE

REACTIONS (3)
  - Renal failure [Recovered/Resolved with Sequelae]
  - Acidosis hyperchloraemic [Recovered/Resolved]
  - Thrombotic microangiopathy [Recovered/Resolved with Sequelae]

NARRATIVE: CASE EVENT DATE: 20140202
